FAERS Safety Report 4972800-0 (Version None)
Quarter: 2006Q2

REPORT INFORMATION
  Report Type: 
  Country: None (occurrence: None)
  Receive Date: 20060414
  Receipt Date: 20060406
  Transmission Date: 20061013
  Serious: Yes (Hospitalization)
  Sender: FDA-Public Use
  Company Number: FR-JNJFOC-20060402106

PATIENT
  Sex: Male
  Weight: 64 kg

DRUGS (2)
  1. HALDOL [Suspect]
     Indication: SCHIZOPHRENIA
     Route: 048
  2. LEPTICUR [Concomitant]

REACTIONS (3)
  - DELUSION [None]
  - MUSCLE RIGIDITY [None]
  - TREMOR [None]
